FAERS Safety Report 16882155 (Version 1)
Quarter: 2019Q4

REPORT INFORMATION
  Report Type: Spontaneous
  Country: US (occurrence: US)
  Receive Date: 20191003
  Receipt Date: 20191003
  Transmission Date: 20200122
  Serious: Yes (Other)
  Sender: FDA-Public Use
  Company Number: None

PATIENT
  Age: 46 Year
  Sex: Female
  Weight: 109 kg

DRUGS (1)
  1. VANCOMYCIN [Suspect]
     Active Substance: VANCOMYCIN
     Indication: BACTERAEMIA
     Route: 042
     Dates: start: 20190829, end: 20191003

REACTIONS (1)
  - Renal failure [None]

NARRATIVE: CASE EVENT DATE: 20190919
